FAERS Safety Report 5807824-4 (Version None)
Quarter: 2008Q3

REPORT INFORMATION
  Report Type: 
  Country: None (occurrence: None)
  Receive Date: 20080711
  Receipt Date: 20080703
  Transmission Date: 20090109
  Serious: Yes (Other)
  Sender: FDA-Public Use
  Company Number: US-BOEHRINGER INGELHEIM GMBH, GERMANY-2008-DE-03860GD

PATIENT
  Age: 45 Year
  Sex: Male

DRUGS (5)
  1. PRAMIPEXOLE DIHYDROCHLORIDE [Suspect]
     Indication: PARKINSON'S DISEASE
  2. AMANTADINE HCL [Suspect]
     Indication: PARKINSON'S DISEASE
  3. CARBIDOPA AND LEVODOPA [Suspect]
     Indication: PARKINSON'S DISEASE
     Dosage: TOTAL LEVODOPA DOSE 112.5 MG PER DAY
  4. CARBIDOPA AND LEVODOPA [Suspect]
     Dosage: LEVODOPA TOTAL DAILY DOSE 112.5 MG PLUS CARBIDOPA/LEVODOPA 25/100 CR AT BEDTIME
  5. ENTACAPONE [Suspect]
     Indication: PARKINSON'S DISEASE

REACTIONS (3)
  - DRUG EFFECT DECREASED [None]
  - DYSTONIA [None]
  - FOOT FRACTURE [None]
